FAERS Safety Report 7074045-X (Version None)
Quarter: 2010Q4

REPORT INFORMATION
  Report Type: 
  Country: None (occurrence: None)
  Receive Date: 20101029
  Receipt Date: 20101020
  Transmission Date: 20110411
  Serious: Yes (Other)
  Sender: FDA-Public Use
  Company Number: CHPA2010US16514

PATIENT
  Age: 42 Year
  Sex: Female
  Weight: 72.562 kg

DRUGS (1)
  1. EXCEDRIN (MIGRAINE) [Suspect]
     Indication: MIGRAINE
     Dosage: 2 DF, QD
     Route: 048
     Dates: end: 20101001

REACTIONS (4)
  - COLITIS ULCERATIVE [None]
  - COLONOSCOPY [None]
  - DIARRHOEA [None]
  - INTENTIONAL DRUG MISUSE [None]
